APPROVED DRUG PRODUCT: ZANAFLEX
Active Ingredient: TIZANIDINE HYDROCHLORIDE
Strength: EQ 2MG BASE **Federal Register determination that product was not discontinued or withdrawn for safety or effectiveness reasons**
Dosage Form/Route: TABLET;ORAL
Application: N020397 | Product #002
Applicant: LEGACY PHARMA USA INC
Approved: Feb 4, 2000 | RLD: Yes | RS: No | Type: DISCN